FAERS Safety Report 5179515-7 (Version None)
Quarter: 2006Q4

REPORT INFORMATION
  Report Type: 
  Country: None (occurrence: None)
  Receive Date: 20061211
  Receipt Date: 20061123
  Transmission Date: 20070319
  Serious: Yes (Hospitalization)
  Sender: FDA-Public Use
  Company Number: CLOF-10407

PATIENT
  Age: 66 Year
  Sex: Male

DRUGS (1)
  1. CLOFARABINE [Suspect]
     Indication: ACUTE MYELOID LEUKAEMIA
     Dosage: 20 MG/M2 QD IV
     Route: 042
     Dates: start: 20060929, end: 20061002

REACTIONS (3)
  - FLUSHING [None]
  - LOSS OF CONSCIOUSNESS [None]
  - VOMITING [None]
